FAERS Safety Report 14340446 (Version 1)
Quarter: 2018Q1

REPORT INFORMATION
  Report Type: Spontaneous
  Country: FR (occurrence: FR)
  Receive Date: 20180101
  Receipt Date: 20180101
  Transmission Date: 20180509
  Serious: Yes (Other)
  Sender: FDA-Public Use
  Company Number: FR-CONCORDIA PHARMACEUTICALS INC.-E2B_00009191

PATIENT
  Age: 10 Year
  Sex: Female
  Weight: 27.6 kg

DRUGS (2)
  1. PREDNISOLONE. [Suspect]
     Active Substance: PREDNISOLONE
     Indication: HAEMOLYTIC ANAEMIA
     Route: 048
     Dates: start: 20010606
  2. IMUREL 50 MG, COMPRIM? PELLICUL? [Suspect]
     Active Substance: AZATHIOPRINE
     Indication: HAEMOLYTIC ANAEMIA
     Route: 048
     Dates: start: 20020507, end: 20021031

REACTIONS (1)
  - Bronchitis [Recovered/Resolved]

NARRATIVE: CASE EVENT DATE: 200208
